FAERS Safety Report 4912600-0 (Version None)
Quarter: 2006Q1

REPORT INFORMATION
  Report Type: 
  Country: None (occurrence: None)
  Receive Date: 20060215
  Receipt Date: 20060206
  Transmission Date: 20060701
  Serious: Yes (Other)
  Sender: FDA-Public Use
  Company Number: PT-GLAXOSMITHKLINE-B0410460A

PATIENT
  Age: 63 Year
  Sex: Female
  Weight: 50 kg

DRUGS (1)
  1. LAMICTAL [Suspect]
     Indication: DRUG USE FOR UNKNOWN INDICATION
     Route: 048
     Dates: start: 20051130, end: 20051226

REACTIONS (6)
  - BIPOLAR DISORDER [None]
  - HYPERTHERMIA [None]
  - MEDICATION ERROR [None]
  - ODYNOPHAGIA [None]
  - PRURITUS [None]
  - RASH GENERALISED [None]
